FAERS Safety Report 5833431-3 (Version None)
Quarter: 2008Q3

REPORT INFORMATION
  Report Type: 
  Country: None (occurrence: None)
  Receive Date: 20080801
  Receipt Date: 20080801
  Transmission Date: 20090109
  Serious: Yes (Other)
  Sender: FDA-Public Use
  Company Number: None

PATIENT
  Age: 33 Year
  Sex: Female
  Weight: 63.5036 kg

DRUGS (3)
  1. ZOLPIDEM [Suspect]
     Indication: INSOMNIA
     Dosage: 2 TABS - 20MG QHS PO
     Route: 048
     Dates: start: 20080710, end: 20080722
  2. TEGRETOL [Concomitant]
  3. PROZAC [Concomitant]

REACTIONS (3)
  - CONTUSION [None]
  - DRUG HYPERSENSITIVITY [None]
  - PRURITUS [None]
